FAERS Safety Report 22250677 (Version 3)
Quarter: 2023Q4

REPORT INFORMATION
  Report Type: Report from Study
  Country: US (occurrence: US)
  Receive Date: 20230425
  Receipt Date: 20231220
  Transmission Date: 20240110
  Serious: Yes (Hospitalization, Other)
  Sender: FDA-Public Use
  Company Number: US-TAKEDA-US202019536

PATIENT
  Age: 64 Year
  Sex: Male

DRUGS (7)
  1. HUMAN IMMUNOGLOBULIN G [Suspect]
     Active Substance: HUMAN IMMUNOGLOBULIN G
     Indication: Primary immunodeficiency syndrome
     Dosage: UNK
     Route: 042
  2. MODERNA COVID-19 VACCINE [Suspect]
     Active Substance: ELASOMERAN
     Indication: Product used for unknown indication
     Dosage: UNK
     Route: 065
  3. ZEMAIRA [Concomitant]
     Active Substance: .ALPHA.1-PROTEINASE INHIBITOR HUMAN
     Indication: Product used for unknown indication
     Route: 065
  4. VITAMIN B12 [Concomitant]
     Active Substance: CYANOCOBALAMIN
  5. B 9 [Concomitant]
  6. FOLIC ACID [Concomitant]
     Active Substance: FOLIC ACID
  7. IRON [Concomitant]
     Active Substance: IRON
     Dosage: 25 GRAM, BID
     Route: 065

REACTIONS (6)
  - Pneumonia [Unknown]
  - Pneumonia fungal [Unknown]
  - Normocytic anaemia [Unknown]
  - Heart rate increased [Unknown]
  - Dyspnoea [Unknown]
  - Inappropriate schedule of product administration [Unknown]

NARRATIVE: CASE EVENT DATE: 20230701
